FAERS Safety Report 4874200-0 (Version None)
Quarter: 2006Q1

REPORT INFORMATION
  Report Type: 
  Country: None (occurrence: None)
  Receive Date: 20060106
  Receipt Date: 20051228
  Transmission Date: 20060701
  Serious: Yes (Hospitalization)
  Sender: FDA-Public Use
  Company Number: JP-JNJFOC-20060100905

PATIENT
  Age: 74 Year
  Sex: Female

DRUGS (3)
  1. ITRIZOLE [Suspect]
     Indication: NAIL TINEA
     Route: 048
  2. NILVADIPINE [Interacting]
     Indication: DRUG USE FOR UNKNOWN INDICATION
     Route: 048
  3. GRANISETRON  HCL [Concomitant]
     Route: 048

REACTIONS (4)
  - DRUG INTERACTION [None]
  - LOSS OF CONSCIOUSNESS [None]
  - NAUSEA [None]
  - PALLOR [None]
